FAERS Safety Report 15587507 (Version 1)
Quarter: 2018Q4

REPORT INFORMATION
  Report Type: Spontaneous
  Country: FR (occurrence: FR)
  Receive Date: 20181105
  Receipt Date: 20181105
  Transmission Date: 20190205
  Serious: Yes (Life-Threatening, Other)
  Sender: FDA-Public Use
  Company Number: FR-MYLANLABS-2018M1082355

PATIENT
  Age: 37 Year
  Sex: Male

DRUGS (6)
  1. AZTREONAM. [Suspect]
     Active Substance: AZTREONAM
     Indication: ANTIBIOTIC PROPHYLAXIS
     Dosage: 1 G, TOTAL
     Route: 040
     Dates: start: 20171011, end: 20171011
  2. PARACETAMOL [Suspect]
     Active Substance: ACETAMINOPHEN
     Indication: PAIN PROPHYLAXIS
     Dosage: 1 G,UNK
     Route: 042
  3. VANCOMYCIN [Suspect]
     Active Substance: VANCOMYCIN
     Dosage: 800 MG,UNK
     Route: 041
     Dates: start: 20171011, end: 20171011
  4. VANCOMYCIN [Suspect]
     Active Substance: VANCOMYCIN
     Indication: PRODUCT USED FOR UNKNOWN INDICATION
     Dosage: 1 G,UNK
     Route: 041
     Dates: start: 20171011, end: 20171011
  5. GENTAMICIN SULFATE. [Suspect]
     Active Substance: GENTAMICIN SULFATE
     Indication: ANTIBIOTIC PROPHYLAXIS
     Dosage: 400 MG, TOTAL
     Route: 040
     Dates: start: 20171011, end: 20171011
  6. PROPOFOL. [Suspect]
     Active Substance: PROPOFOL
     Indication: ANAESTHESIA
     Dosage: UNK
     Route: 042
     Dates: start: 20171011, end: 20171011

REACTIONS (8)
  - Face oedema [Unknown]
  - Dyspnoea [Unknown]
  - Anaphylactic shock [Recovering/Resolving]
  - Blood pressure diastolic decreased [Unknown]
  - Localised oedema [Recovering/Resolving]
  - Urticaria [Unknown]
  - Pallor [Unknown]
  - Tachycardia [Unknown]

NARRATIVE: CASE EVENT DATE: 20171011
